FAERS Safety Report 16863153 (Version 2)
Quarter: 2019Q3

REPORT INFORMATION
  Report Type: Report from Study
  Country: US (occurrence: US)
  Receive Date: 20190927
  Receipt Date: 20190927
  Transmission Date: 20191005
  Serious: No
  Sender: FDA-Public Use
  Company Number: PHEH2019US039925

PATIENT
  Age: 44 Year
  Sex: Female

DRUGS (2)
  1. METHOTREXATE. [Suspect]
     Active Substance: METHOTREXATE
     Indication: PRODUCT USED FOR UNKNOWN INDICATION
     Route: 065
  2. COSENTYX [Suspect]
     Active Substance: SECUKINUMAB
     Indication: PSORIATIC ARTHROPATHY
     Dosage: 150 MG, QMO
     Route: 058
     Dates: start: 20190816

REACTIONS (7)
  - Ulcer [Not Recovered/Not Resolved]
  - Skin haemorrhage [Recovering/Resolving]
  - Contusion [Not Recovered/Not Resolved]
  - Impaired healing [Recovering/Resolving]
  - Hepatic enzyme increased [Recovering/Resolving]
  - Coagulation time prolonged [Recovering/Resolving]
  - Diarrhoea [Recovering/Resolving]
